FAERS Safety Report 10043797 (Version 1)
Quarter: 2014Q1

REPORT INFORMATION
  Report Type: Report from Study
  Country: BR (occurrence: BR)
  Receive Date: 20140328
  Receipt Date: 20140328
  Transmission Date: 20141002
  Serious: Yes (Death, Hospitalization, Other)
  Sender: FDA-Public Use
  Company Number: PHHY2014BR036952

PATIENT
  Sex: Female

DRUGS (4)
  1. DIOVAN [Suspect]
     Indication: BLOOD PRESSURE INADEQUATELY CONTROLLED
     Dosage: 1 DF (320MG) AT NIGHT
     Route: 048
  2. ATENOLOL [Concomitant]
     Indication: BLOOD PRESSURE ABNORMAL
     Dosage: 50 MG, UNK
  3. ZANIDIP [Concomitant]
     Indication: BLOOD PRESSURE ABNORMAL
     Dosage: 10 MG, UNK
  4. LEVOID [Concomitant]
     Indication: THYROID DISORDER
     Dosage: 38 UG, UNK

REACTIONS (7)
  - Infection [Fatal]
  - Dementia Alzheimer^s type [Unknown]
  - Dysphagia [Unknown]
  - Aphagia [Unknown]
  - Urinary tract infection [Unknown]
  - Fall [Unknown]
  - Dizziness [Unknown]
